FAERS Safety Report 5903178-3 (Version None)
Quarter: 2008Q3

REPORT INFORMATION
  Report Type: 
  Country: None (occurrence: None)
  Receive Date: 20080930
  Receipt Date: 20080924
  Transmission Date: 20090109
  Serious: Yes (Disabling)
  Sender: FDA-Public Use
  Company Number: DE-JNJFOC-20080906201

PATIENT
  Age: 74 Year
  Sex: Male

DRUGS (1)
  1. TAVANIC [Suspect]
     Indication: FURUNCLE
     Dosage: FILM-COATED TABLETS
     Route: 048

REACTIONS (1)
  - TENOSYNOVITIS [None]
